FAERS Safety Report 6178329-9 (Version None)
Quarter: 2009Q2

REPORT INFORMATION
  Report Type: 
  Country: None (occurrence: None)
  Receive Date: 20090504
  Receipt Date: 20090422
  Transmission Date: 20091009
  Serious: Yes (Hospitalization)
  Sender: FDA-Public Use
  Company Number: AT-JNJCH-2009012065

PATIENT
  Sex: Male

DRUGS (3)
  1. CETIRIZINE [Suspect]
     Indication: DRUG USE FOR UNKNOWN INDICATION
     Dosage: TEXT:5 MG
     Route: 042
     Dates: start: 20090422, end: 20090422
  2. PREDNISOLONE [Concomitant]
     Indication: URTICARIA
     Dosage: TEXT:UNKNOWN
     Route: 065
  3. PREDNISOLONE [Concomitant]
     Indication: OBSTRUCTIVE AIRWAYS DISORDER

REACTIONS (1)
  - INCORRECT ROUTE OF DRUG ADMINISTRATION [None]
